APPROVED DRUG PRODUCT: CHLORTHALIDONE
Active Ingredient: CHLORTHALIDONE
Strength: 25MG
Dosage Form/Route: TABLET;ORAL
Application: A216262 | Product #001 | TE Code: AB
Applicant: ALEMBIC PHARMACEUTICALS LTD
Approved: Aug 26, 2022 | RLD: No | RS: No | Type: RX